FAERS Safety Report 11449392 (Version 1)
Quarter: 2015Q3

REPORT INFORMATION
  Report Type: Spontaneous
  Country: US (occurrence: US)
  Receive Date: 20150902
  Receipt Date: 20150902
  Transmission Date: 20151125
  Serious: No
  Sender: FDA-Public Use
  Company Number: PHEH2015US016916

PATIENT
  Sex: Male

DRUGS (1)
  1. COSENTYX [Suspect]
     Active Substance: SECUKINUMAB
     Indication: PSORIASIS
     Dosage: 300 MG, QW
     Route: 058
     Dates: start: 20150722, end: 20150827

REACTIONS (4)
  - Pyrexia [Unknown]
  - Erythrodermic psoriasis [Not Recovered/Not Resolved]
  - Skin fissures [Unknown]
  - Pain [Unknown]

NARRATIVE: CASE EVENT DATE: 20150722
